FAERS Safety Report 8117386-7 (Version None)
Quarter: 2012Q1

REPORT INFORMATION
  Report Type: 
  Country: None (occurrence: None)
  Receive Date: 20120206
  Receipt Date: 20120126
  Transmission Date: 20120608
  Serious: Yes (Other)
  Sender: FDA-Public Use
  Company Number: US-ASTRAZENECA-2011SE70607

PATIENT
  Age: 53 Year
  Sex: Male

DRUGS (7)
  1. LISINOPRIL [Suspect]
     Route: 048
     Dates: start: 20111026
  2. HYDRALAZINE HCL [Concomitant]
  3. METOPROLOL [Concomitant]
  4. EFFIENT [Concomitant]
  5. BRILINTA [Suspect]
     Route: 048
     Dates: start: 20111101
  6. AMLODIPINE [Concomitant]
  7. LIPITOR [Concomitant]

REACTIONS (4)
  - HYPERTENSION [None]
  - ANGIOEDEMA [None]
  - CHEST PAIN [None]
  - NAUSEA [None]
